FAERS Safety Report 19176298 (Version 4)
Quarter: 2021Q2

REPORT INFORMATION
  Report Type: Spontaneous
  Country: US (occurrence: US)
  Receive Date: 20210423
  Receipt Date: 20210518
  Transmission Date: 20210717
  Serious: Yes (Other)
  Sender: FDA-Public Use
  Company Number: US-ORGANON-O2104USA001784

PATIENT
  Age: 29 Year
  Sex: Female
  Weight: 53.06 kg

DRUGS (3)
  1. NEXPLANON [Suspect]
     Active Substance: ETONOGESTREL
     Dosage: 1 IMPLANT
     Route: 059
  2. NEXPLANON [Suspect]
     Active Substance: ETONOGESTREL
     Dosage: 1 IMPLANT
     Route: 059
     Dates: end: 20210419
  3. NEXPLANON [Suspect]
     Active Substance: ETONOGESTREL
     Indication: CONTRACEPTION
     Dosage: 1 IMPLANT, RIGHT (DOMINANT) ARM
     Route: 059
     Dates: start: 20210419

REACTIONS (10)
  - Device dislocation [Not Recovered/Not Resolved]
  - Electric shock sensation [Not Recovered/Not Resolved]
  - Paraesthesia [Not Recovered/Not Resolved]
  - Complication of device removal [Not Recovered/Not Resolved]
  - Hypoaesthesia [Recovering/Resolving]
  - Pain [Not Recovered/Not Resolved]
  - Device issue [Not Recovered/Not Resolved]
  - Device placement issue [Not Recovered/Not Resolved]
  - Weight bearing difficulty [Not Recovered/Not Resolved]
  - Complication associated with device [Not Recovered/Not Resolved]

NARRATIVE: CASE EVENT DATE: 20210419
